FAERS Safety Report 8142608 (Version 3)
Quarter: 2012Q4

REPORT INFORMATION
  Report Type: 
  Country: US (occurrence: US)
  Receive Date: 20110919
  Receipt Date: 20121127
  Transmission Date: 20130627
  Serious: Yes (Hospitalization, Disabling)
  Sender: FDA-Public Use
  Company Number: US-BAYER-2011-084202

PATIENT
  Age: 29 Year
  Sex: Female
  Weight: 53.97 kg

DRUGS (9)
  1. YAZ [Suspect]
     Dosage: UNK
     Dates: start: 2009, end: 2010
  2. ATIVAN [Concomitant]
  3. ADVIL [Concomitant]
     Dosage: As needed, UNK
     Route: 048
     Dates: start: 2000
  4. IBUPROFEN [Concomitant]
  5. DILANTIN [Concomitant]
  6. KLONOPIN [Concomitant]
     Indication: ANXIETY
  7. RITALIN [Concomitant]
     Indication: ATTENTION CONCENTRATION DIFFICULTY
  8. FENTANYL [Concomitant]
     Indication: PAIN
     Dosage: 50 mg, UNK
  9. ZOFRAN [Concomitant]
     Dosage: 4 mg, PRN

REACTIONS (33)
  - Cavernous sinus thrombosis [None]
  - Haemorrhage intracranial [None]
  - Encephalopathy [None]
  - Depression [None]
  - Convulsion [None]
  - Muscular weakness [None]
  - Status epilepticus [None]
  - Dizziness [None]
  - Burning sensation [None]
  - Aphasia [None]
  - Injury [None]
  - Headache [None]
  - Vision blurred [None]
  - Amnesia [None]
  - Anxiety [None]
  - Confusional state [None]
  - Disturbance in attention [None]
  - Fatigue [None]
  - Paraesthesia [None]
  - Muscle spasms [None]
  - Hypoaesthesia [None]
  - Blindness [None]
  - Anhedonia [None]
  - Sleep disorder [None]
  - Exercise tolerance decreased [None]
  - Gait disturbance [None]
  - Impulsive behaviour [None]
  - Memory impairment [None]
  - Chest pain [None]
  - Vertigo [None]
  - Fear [None]
  - Aphasia [None]
  - Arthralgia [None]
